FAERS Safety Report 10013096 (Version 1)
Quarter: 2014Q1

REPORT INFORMATION
  Report Type: Spontaneous
  Country: JP (occurrence: JP)
  Receive Date: 20140314
  Receipt Date: 20140314
  Transmission Date: 20141002
  Serious: Yes (Other)
  Sender: FDA-Public Use
  Company Number: JP-B.I. PHARMACEUTICALS,INC./RIDGEFIELD-2014-BI-10737NB

PATIENT
  Age: 69 Year
  Sex: Male
  Weight: 61 kg

DRUGS (4)
  1. PRAZAXA [Suspect]
     Indication: ATRIAL FIBRILLATION
     Dosage: 300 MG
     Route: 048
     Dates: start: 20130807
  2. DIOVAN [Concomitant]
     Dosage: 80 MG
     Route: 048
  3. NORVASC [Concomitant]
     Dosage: 5 MG
     Route: 048
  4. FLUITRAN [Concomitant]
     Dosage: 2 MG
     Route: 048

REACTIONS (1)
  - Lacunar infarction [Unknown]
